FAERS Safety Report 19150080 (Version 1)
Quarter: 2021Q2

REPORT INFORMATION
  Report Type: Report from Study
  Country: BR (occurrence: BR)
  Receive Date: 20210417
  Receipt Date: 20210417
  Transmission Date: 20210717
  Serious: Yes (Other)
  Sender: FDA-Public Use
  Company Number: NVSC2021BR081376

PATIENT
  Age: 58 Year
  Sex: Female
  Weight: 61 kg

DRUGS (7)
  1. LUMIGAN [Concomitant]
     Active Substance: BIMATOPROST
     Indication: GLAUCOMA
     Dosage: 0.3 %, QD (ONE DROP AT NIGHT) (STARTED 8 OR 10 YEAR AGO)
     Route: 047
  2. DORZOL [Concomitant]
     Indication: GLAUCOMA
     Dosage: (ADROP IN EACH EYE)
     Route: 047
     Dates: start: 202003, end: 202102
  3. AZOPT [Suspect]
     Active Substance: BRINZOLAMIDE
     Dosage: 5 MG, BID (IN THE MORNING AND AFTERNOON)
     Route: 047
     Dates: end: 202003
  4. TIMOLOL SANDOZ [Suspect]
     Active Substance: TIMOLOL
     Indication: GLAUCOMA
     Dosage: 0.5 MG, BID (IN THE MORNING AND AFTERNOON)
     Route: 047
     Dates: end: 202003
  5. TRAVATAN [Concomitant]
     Active Substance: TRAVOPROST
     Indication: GLAUCOMA
     Dosage: 1 DRP, BID  (IN EACH EYES, IN MORNING AND AFTERNOON) (STARTED 12 YEAR AGO)
     Route: 047
  6. ALPHAGAN P [Concomitant]
     Active Substance: BRIMONIDINE TARTRATE
     Indication: GLAUCOMA
     Dosage: 7.8 MG, BID (A DROP IN EACH EYES, IN MORNING AND AFTERNOON) (STARTED 8 OR 10 YEAR AGO)
     Route: 047
  7. AZORGA [Concomitant]
     Active Substance: BRINZOLAMIDE\TIMOLOL MALEATE
     Indication: GLAUCOMA
     Dosage: 1 DRP, BID (IN EACH EYE, IN MORNING AND AFTERNOON)
     Route: 047
     Dates: start: 202102

REACTIONS (14)
  - Cough [Recovering/Resolving]
  - Panic reaction [Recovering/Resolving]
  - Tinnitus [Recovering/Resolving]
  - Labyrinthitis [Recovering/Resolving]
  - Breath odour [Recovering/Resolving]
  - Decreased appetite [Recovered/Resolved]
  - Depression [Recovering/Resolving]
  - Hangover [Recovering/Resolving]
  - Arrhythmia [Recovering/Resolving]
  - Condition aggravated [Recovering/Resolving]
  - Malaise [Recovering/Resolving]
  - Dengue fever [Recovered/Resolved]
  - Pruritus [Recovered/Resolved]
  - Hypersensitivity [Recovered/Resolved]

NARRATIVE: CASE EVENT DATE: 202102
